FAERS Safety Report 10245937 (Version 1)
Quarter: 2014Q2

REPORT INFORMATION
  Report Type: Spontaneous
  Country: US (occurrence: None)
  Receive Date: 20140616
  Receipt Date: 20140616
  Transmission Date: 20141212
  Serious: No
  Sender: FDA-Public Use
  Company Number: None

PATIENT
  Age: 78 Year
  Sex: Female
  Weight: 48.99 kg

DRUGS (11)
  1. AMLODIPINE TAB 5 MG (MANUFACTURER: ZYDUS) BRAND NAME: NORVASC MYLAN [Suspect]
     Indication: HYPERTENSION
     Route: 048
     Dates: start: 200701
  2. METOPROLOL SUCC TAB 25MG ER (MANUFACTURE:MYLAN) [Suspect]
     Route: 048
     Dates: start: 200706
  3. LISINOPRIL [Concomitant]
  4. FIBER [Concomitant]
  5. CALCIUM [Concomitant]
  6. FISH OIL (OMEGA 3) [Concomitant]
  7. OCUVITE [Concomitant]
  8. CENTRUM [Concomitant]
  9. POTASSIUM [Concomitant]
  10. ASPIRIN [Concomitant]
  11. VYTORIN [Concomitant]

REACTIONS (1)
  - Ageusia [None]
